FAERS Safety Report 8262250-6 (Version None)
Quarter: 2012Q2

REPORT INFORMATION
  Report Type: 
  Country: None (occurrence: None)
  Receive Date: 20120405
  Receipt Date: 20120326
  Transmission Date: 20120825
  Serious: Yes (Hospitalization)
  Sender: FDA-Public Use
  Company Number: FR-ROCHE-1053140

PATIENT
  Sex: Male

DRUGS (7)
  1. CISPLATIN [Concomitant]
     Indication: PLEURAL MESOTHELIOMA
     Route: 042
     Dates: start: 20101103
  2. OXYCONTIN [Concomitant]
     Route: 048
  3. ALIMTA [Concomitant]
     Indication: PLEURAL MESOTHELIOMA
     Route: 042
     Dates: start: 20101103
  4. AVASTIN [Suspect]
     Indication: PLEURAL MESOTHELIOMA
     Route: 042
     Dates: start: 20111101, end: 20120201
  5. FOLIC ACID [Concomitant]
     Route: 048
     Dates: start: 20111101
  6. NEXIUM [Concomitant]
     Route: 048
  7. OXYCODONE HCL [Concomitant]
     Route: 048

REACTIONS (2)
  - FISTULA [None]
  - PNEUMATURIA [None]
